FAERS Safety Report 25424785 (Version 1)
Quarter: 2025Q2

REPORT INFORMATION
  Report Type: Spontaneous
  Country: BE (occurrence: BE)
  Receive Date: 20250611
  Receipt Date: 20250611
  Transmission Date: 20250717
  Serious: Yes (Other)
  Sender: ELI LILLY AND COMPANY
  Company Number: None

PATIENT
  Age: 35 Year
  Sex: Female

DRUGS (2)
  1. MOUNJARO [Suspect]
     Active Substance: TIRZEPATIDE
     Indication: Weight control
     Dosage: FIRST INJECTION WITH 2,5 MG - THE FOLLOWING INJECTIONS WITH 5 MG
     Route: 058
     Dates: start: 20250225
  2. MOUNJARO [Suspect]
     Active Substance: TIRZEPATIDE
     Dosage: FIRST INJECTION WITH 2,5 MG - THE FOLLOWING INJECTIONS WITH 5 MG
     Route: 058

REACTIONS (4)
  - Liver function test abnormal [Not Recovered/Not Resolved]
  - Renal function test abnormal [Not Recovered/Not Resolved]
  - Abdominal pain upper [Not Recovered/Not Resolved]
  - Abdominal pain [Not Recovered/Not Resolved]

NARRATIVE: CASE EVENT DATE: 20250317
